FAERS Safety Report 26010968 (Version 1)
Quarter: 2025Q4

REPORT INFORMATION
  Report Type: Spontaneous
  Country: US (occurrence: None)
  Receive Date: 20251106
  Receipt Date: 20251106
  Transmission Date: 20260117
  Serious: Yes (Death, Hospitalization)
  Sender: FDA-CTU
  Company Number: None

PATIENT
  Age: 63 Year
  Sex: Male

DRUGS (1)
  1. OFEV [Suspect]
     Active Substance: NINTEDANIB
     Indication: Interstitial lung disease
     Dosage: 150MG BID ORAL ?
     Route: 048
     Dates: start: 20250825, end: 20251031

REACTIONS (7)
  - Interstitial lung disease [None]
  - Unresponsive to stimuli [None]
  - Sepsis [None]
  - Pneumonia aspiration [None]
  - Pneumoperitoneum [None]
  - Mental status changes [None]
  - Terminal state [None]

NARRATIVE: CASE EVENT DATE: 20251031
